FAERS Safety Report 25575521 (Version 1)
Quarter: 2025Q3

REPORT INFORMATION
  Report Type: Spontaneous
  Country: CN (occurrence: CN)
  Receive Date: 20250718
  Receipt Date: 20250718
  Transmission Date: 20251020
  Serious: Yes (Other)
  Sender: SHENZHEN TECHDOW PHARMACEUTICAL
  Company Number: CN-adr44030518216-HPR2025000388

PATIENT
  Age: 46 Year
  Sex: Female
  Weight: 70 kg

DRUGS (2)
  1. ENOXAPARIN SODIUM [Suspect]
     Active Substance: ENOXAPARIN SODIUM
     Indication: Basal ganglia haemorrhage
     Dosage: 0.4ML,ONCE EVERY NIGHT
     Dates: start: 20250621, end: 20250623
  2. SULFAMETHOXAZOLE [Suspect]
     Active Substance: SULFAMETHOXAZOLE
     Indication: Basal ganglia haemorrhage
     Dosage: 2 TABLETS,TID
     Dates: start: 20250613, end: 20250622

REACTIONS (4)
  - Rash [Unknown]
  - Transaminases increased [Unknown]
  - Fibrin D dimer increased [Unknown]
  - Product use in unapproved indication [Unknown]

NARRATIVE: CASE EVENT DATE: 20250621
